FAERS Safety Report 4976851-1 (Version None)
Quarter: 2006Q1

REPORT INFORMATION
  Report Type: 
  Country: None (occurrence: None)
  Receive Date: 20060317
  Receipt Date: 20060306
  Transmission Date: 20060701
  Serious: Yes (Other)
  Sender: FDA-Public Use
  Company Number: HQWYE104002MAR06

PATIENT
  Age: 24 Month
  Sex: Male
  Weight: 12.7 kg

DRUGS (3)
  1. REFACTO [Suspect]
     Indication: FACTOR VIII DEFICIENCY
     Dosage: SEE IMAGE
     Dates: start: 20040904, end: 20050901
  2. REFACTO [Suspect]
     Indication: FACTOR VIII DEFICIENCY
     Dosage: SEE IMAGE
     Dates: start: 20060101, end: 20060101
  3. REFACTO [Suspect]
     Indication: FACTOR VIII DEFICIENCY
     Dosage: SEE IMAGE
     Dates: start: 20060201, end: 20060201

REACTIONS (3)
  - FACTOR VIII INHIBITION [None]
  - HAEMARTHROSIS [None]
  - THERAPY NON-RESPONDER [None]
